FAERS Safety Report 4457557-4 (Version None)
Quarter: 2004Q3

REPORT INFORMATION
  Report Type: 
  Country: None (occurrence: None)
  Receive Date: 20040922
  Receipt Date: 20040827
  Transmission Date: 20050211
  Serious: Yes (Other)
  Sender: FDA-Public Use
  Company Number: USA040876748

PATIENT
  Age: 34 Year
  Sex: Female

DRUGS (5)
  1. HUMALOG [Suspect]
     Indication: DIABETES MELLITUS
     Dates: start: 20021001
  2. HUMULIN N [Suspect]
     Indication: DIABETES MELLITUS
     Dates: start: 19850101
  3. HUMULIN R [Suspect]
     Indication: DIABETES MELLITUS
     Dates: start: 19850101
  4. INSULIN [Suspect]
     Indication: DIABETES MELLITUS
     Dates: start: 19700101
  5. LANTUS [Concomitant]

REACTIONS (8)
  - BLOOD GLUCOSE INCREASED [None]
  - HAEMORRHAGE [None]
  - HYPERSENSITIVITY [None]
  - INJECTION SITE ERYTHEMA [None]
  - INJECTION SITE URTICARIA [None]
  - INJECTION SITE WARMTH [None]
  - PROTEINURIA [None]
  - SWELLING [None]
